FAERS Safety Report 6162502-X (Version None)
Quarter: 2009Q2

REPORT INFORMATION
  Report Type: 
  Country: None (occurrence: None)
  Receive Date: 20090417
  Receipt Date: 20090408
  Transmission Date: 20091009
  Serious: Yes (Hospitalization)
  Sender: FDA-Public Use
  Company Number: 200904AGG00866

PATIENT
  Age: 79 Year
  Sex: Female

DRUGS (8)
  1. TIROFIBRAN HYDROCHLORIDE (TIROFIBAN HC1) [Suspect]
     Indication: ACUTE CORONARY SYNDROME
     Dosage: INTRAVENOUS
     Route: 042
     Dates: start: 20081208, end: 20081210
  2. ASPIRIN LYSINE (ASPIRIN LYSINE) (NOT SPECIFIED) [Suspect]
     Indication: ACUTE CORONARY SYNDROME
     Dates: start: 20081208
  3. CLOPIDOGREL BISULFATE [Suspect]
     Indication: ACUTE CORONARY SYNDROME
     Dates: start: 20081208
  4. ENOXAPARIN SODIUM [Suspect]
     Indication: ACUTE CORONARY SYNDROME
     Dates: start: 20081209
  5. HEPARIN CALCIUM [Suspect]
     Indication: ACUTE CORONARY SYNDROME
     Dates: start: 20081208, end: 20081208
  6. ESOMEPRAZOLE MAGNESIUM [Concomitant]
  7. PACLITAXEL [Concomitant]
  8. PRAZEPAM [Concomitant]

REACTIONS (2)
  - GASTRITIS EROSIVE [None]
  - UPPER GASTROINTESTINAL HAEMORRHAGE [None]
